FAERS Safety Report 15111554 (Version 1)
Quarter: 2018Q3

REPORT INFORMATION
  Report Type: Spontaneous
  Country: US (occurrence: US)
  Receive Date: 20180705
  Receipt Date: 20180705
  Transmission Date: 20181010
  Serious: Yes (Hospitalization)
  Sender: FDA-Public Use
  Company Number: US-JNJFOC-20180639818

PATIENT
  Age: 69 Year
  Sex: Female

DRUGS (1)
  1. INVOKANA [Suspect]
     Active Substance: CANAGLIFLOZIN
     Indication: TYPE 2 DIABETES MELLITUS
     Route: 048
     Dates: start: 20140904, end: 20160208

REACTIONS (4)
  - Gangrene [Unknown]
  - Limb amputation [Unknown]
  - Osteomyelitis [Unknown]
  - Diabetic foot [Unknown]

NARRATIVE: CASE EVENT DATE: 201509
